FAERS Safety Report 5249235-9 (Version None)
Quarter: 2007Q1

REPORT INFORMATION
  Report Type: 
  Country: None (occurrence: None)
  Receive Date: 20070228
  Receipt Date: 20070222
  Transmission Date: 20070707
  Serious: Yes (Other)
  Sender: FDA-Public Use
  Company Number: 2006AP05931

PATIENT
  Age: 29184 Day
  Sex: Male

DRUGS (8)
  1. CASODEX [Suspect]
     Indication: PROSTATE CANCER
     Route: 048
     Dates: start: 20060811, end: 20061107
  2. CASODEX [Suspect]
     Indication: ADENOCARCINOMA
     Route: 048
     Dates: start: 20060811, end: 20061107
  3. ZOLADEX [Suspect]
     Indication: PROSTATE CANCER
     Route: 058
     Dates: start: 20060908
  4. ZOLADEX [Suspect]
     Indication: ADENOCARCINOMA
     Route: 058
     Dates: start: 20060908
  5. HARNAL [Concomitant]
     Route: 048
  6. GASTER D [Concomitant]
     Indication: REFLUX OESOPHAGITIS
     Route: 048
     Dates: start: 20040812
  7. MAGNESIUM OXIDE [Concomitant]
     Indication: CONSTIPATION
     Route: 048
     Dates: start: 20060803
  8. TUNALMIN [Concomitant]
     Indication: REFLUX OESOPHAGITIS
     Route: 048
     Dates: start: 20040617

REACTIONS (1)
  - CARDIAC FAILURE [None]
